FAERS Safety Report 23726694 (Version 1)
Quarter: 2024Q2

REPORT INFORMATION
  Report Type: Spontaneous
  Country: JP (occurrence: JP)
  Receive Date: 20240410
  Receipt Date: 20240410
  Transmission Date: 20240716
  Serious: Yes (Hospitalization)
  Sender: FDA-Public Use
  Company Number: JP-CHUGAI-A2018016850ROCHE

PATIENT
  Age: 60 Year
  Sex: Female
  Weight: 56 kg

DRUGS (3)
  1. CAPECITABINE [Suspect]
     Active Substance: CAPECITABINE
     Indication: Small intestine adenocarcinoma
     Dosage: DAY1-14, MOST RECENT DOSE ADMINISTERED ON 29/MAR/2018?DAILY DOSE: 2400 MILLIGRAM
     Route: 048
     Dates: start: 20171006, end: 20180329
  2. CAPECITABINE [Suspect]
     Active Substance: CAPECITABINE
     Indication: Small intestine adenocarcinoma
     Dosage: DAILY DOSE: 2400 MILLIGRAM
     Route: 048
     Dates: start: 20180323
  3. OXALIPLATIN [Suspect]
     Active Substance: OXALIPLATIN
     Indication: Small intestine adenocarcinoma
     Dosage: ROA: IV DRIP. DOSE INTERVAL UNCERTAINTY
     Route: 042
     Dates: start: 20171006, end: 20180329

REACTIONS (3)
  - Hip fracture [Recovering/Resolving]
  - Fall [Unknown]
  - Off label use [Recovered/Resolved]

NARRATIVE: CASE EVENT DATE: 20171006
